FAERS Safety Report 8257240-3 (Version None)
Quarter: 2012Q2

REPORT INFORMATION
  Report Type: 
  Country: None (occurrence: None)
  Receive Date: 20120403
  Receipt Date: 20120323
  Transmission Date: 20120825
  Serious: Yes (Hospitalization, Other)
  Sender: FDA-Public Use
  Company Number: US-ELI_LILLY_AND_COMPANY-US201109007580

PATIENT
  Sex: Male

DRUGS (24)
  1. DOXAZOSIN MESYLATE [Concomitant]
     Dosage: 8 MG, QD
  2. PLAVIX [Concomitant]
     Dosage: UNK
  3. HUMALOG [Suspect]
     Dosage: UNK UNK, PRN
     Dates: start: 19800101
  4. ASPIRIN [Concomitant]
     Dosage: UNK, QD
  5. HUMALOG [Suspect]
     Indication: DIABETES MELLITUS
     Dosage: UNK UNK, PRN
     Dates: start: 19800101
  6. LEVOXYL [Concomitant]
     Dosage: UNK
  7. GABAPENTIN [Concomitant]
     Dosage: 300 MG, OTHER
  8. SYMLIN [Concomitant]
     Indication: WEIGHT CONTROL
     Dosage: UNK
  9. HUMULIN N [Suspect]
     Indication: DIABETES MELLITUS
     Dosage: UNK
     Dates: start: 19800101, end: 19960101
  10. HUMULIN R [Suspect]
     Dosage: 44 U, QD
     Route: 058
     Dates: start: 20110901
  11. METFORMIN HCL [Concomitant]
     Dosage: 500 MG, QD
  12. FLEXERIL [Concomitant]
     Dosage: 10 MG, UNK
  13. NITROGLYCERIN [Concomitant]
     Indication: CHEST PAIN
     Dosage: UNK
  14. MULTI-VITAMIN [Concomitant]
     Dosage: UNK
  15. VITAMIN TAB [Concomitant]
     Dosage: UNK
  16. HUMULIN R [Suspect]
     Dosage: 44 U, QD
     Route: 058
     Dates: start: 20110901
  17. FISH OIL [Concomitant]
     Dosage: UNK
  18. HUMULIN R [Suspect]
     Indication: DIABETES MELLITUS
     Dosage: UNK
     Dates: start: 19800101, end: 19960101
  19. FUROSEMIDE [Concomitant]
     Dosage: 160 MG, QD
  20. GLIPIZIDE [Concomitant]
     Dosage: 5 MG, BID
  21. CRESTOR [Concomitant]
     Dosage: UNK
  22. METOPROLOL SUCCINATE [Concomitant]
     Dosage: 100 MG, QD
  23. AVAPRO [Concomitant]
     Indication: BLOOD PRESSURE
     Dosage: 300 MG, UNK
  24. NOVOLIN R [Concomitant]
     Indication: DIABETES MELLITUS

REACTIONS (23)
  - MYOCARDIAL INFARCTION [None]
  - KNEE ARTHROPLASTY [None]
  - CARDIAC DISORDER [None]
  - CORONARY ARTERY OCCLUSION [None]
  - HAND DEFORMITY [None]
  - LACRIMATION INCREASED [None]
  - PRURITUS [None]
  - HAEMORRHOIDS [None]
  - GRIP STRENGTH DECREASED [None]
  - INJECTION SITE SWELLING [None]
  - LOSS OF CONSCIOUSNESS [None]
  - FALL [None]
  - BLOOD GLUCOSE DECREASED [None]
  - FINGER DEFORMITY [None]
  - VISUAL ACUITY REDUCED [None]
  - CHONDROPATHY [None]
  - BLOOD GLUCOSE INCREASED [None]
  - CEREBROVASCULAR ACCIDENT [None]
  - CARDIAC PACEMAKER INSERTION [None]
  - MEMORY IMPAIRMENT [None]
  - CONSTIPATION [None]
  - FACE INJURY [None]
  - UPPER LIMB FRACTURE [None]
